FAERS Safety Report 9659906 (Version 1)
Quarter: 2013Q4

REPORT INFORMATION
  Report Type: Spontaneous
  Country: US (occurrence: US)
  Receive Date: 20131031
  Receipt Date: 20131031
  Transmission Date: 20140711
  Serious: Yes (Hospitalization)
  Sender: FDA-Public Use
  Company Number: US-BAYER-2013-128636

PATIENT
  Age: 22 Year
  Sex: Female

DRUGS (2)
  1. OCELLA [Suspect]
  2. IRON [Concomitant]
     Route: 048

REACTIONS (2)
  - Intracranial venous sinus thrombosis [None]
  - Jugular vein thrombosis [None]
